FAERS Safety Report 17930713 (Version 3)
Quarter: 2021Q2

REPORT INFORMATION
  Report Type: Report from Study
  Country: None (occurrence: IL)
  Receive Date: 20200623
  Receipt Date: 20210617
  Transmission Date: 20210717
  Serious: Yes (Death, Hospitalization, Congenital Anomaly, Other)
  Sender: FDA-Public Use
  Company Number: IL-ABBVIE-20K-082-3427537-00

PATIENT
  Age: 84 Year
  Sex: Male
  Weight: 57 kg

DRUGS (20)
  1. BONDORMIN [Concomitant]
     Active Substance: BROTIZOLAM
     Indication: PRODUCT USED FOR UNKNOWN INDICATION
     Dates: start: 20190630
  2. POTASSIUM [Concomitant]
     Active Substance: POTASSIUM
     Route: 048
     Dates: start: 20200507, end: 20200520
  3. TEVACUTAN [Concomitant]
     Indication: SKIN INFECTION
     Dates: start: 20131031, end: 20200520
  4. VIDAZA [Suspect]
     Active Substance: AZACITIDINE
     Dosage: CYCLE 1
     Route: 042
     Dates: start: 20200521, end: 20200521
  5. ZINCREAM [Concomitant]
     Active Substance: ZINC OXIDE
     Indication: RASH
     Dates: start: 20200520, end: 20200520
  6. ALLORIL [Concomitant]
     Active Substance: ALLOPURINOL
     Indication: PROPHYLAXIS
     Dates: start: 20200518, end: 20200526
  7. LORIVAN [Concomitant]
     Active Substance: LORAZEPAM
     Indication: ANXIETY
     Dates: start: 20190630
  8. POTASSIUM [Concomitant]
     Active Substance: POTASSIUM
     Indication: PRODUCT USED FOR UNKNOWN INDICATION
     Dosage: POTASSIUM ADDITIVES
  9. INOTYOL [Concomitant]
     Indication: PROPHYLAXIS
     Dates: start: 20200526, end: 20200611
  10. VENCLEXTA [Suspect]
     Active Substance: VENETOCLAX
     Indication: ACUTE MYELOID LEUKAEMIA
     Dosage: RAMP UP
     Route: 048
     Dates: start: 20200518, end: 20200518
  11. VIDAZA [Suspect]
     Active Substance: AZACITIDINE
     Indication: ACUTE MYELOID LEUKAEMIA
     Dosage: CYCLE 1
     Route: 042
     Dates: start: 20200518, end: 20200518
  12. POTASSIUM [Concomitant]
     Active Substance: POTASSIUM
     Route: 048
     Dates: start: 20200528
  13. VIDAZA [Suspect]
     Active Substance: AZACITIDINE
     Dosage: CYCLE 1
     Route: 042
     Dates: start: 20200526, end: 20200526
  14. NEXIUM [Concomitant]
     Active Substance: ESOMEPRAZOLE MAGNESIUM
     Indication: GASTRIC ULCER
     Dates: start: 20200506
  15. VENCLEXTA [Suspect]
     Active Substance: VENETOCLAX
     Route: 048
     Dates: start: 20200520, end: 20200614
  16. HYDREA [Suspect]
     Active Substance: HYDROXYUREA
     Indication: ACUTE MYELOID LEUKAEMIA
     Route: 048
     Dates: start: 20200506, end: 20200517
  17. VIDAZA [Suspect]
     Active Substance: AZACITIDINE
     Dosage: CYCLE 1
     Route: 042
     Dates: start: 20200520, end: 20200520
  18. MIRO [Concomitant]
     Indication: DEPRESSION
     Dates: start: 20190630
  19. VENCLEXTA [Suspect]
     Active Substance: VENETOCLAX
     Dosage: RAMP UP
     Route: 048
     Dates: start: 20200519, end: 20200519
  20. VIDAZA [Suspect]
     Active Substance: AZACITIDINE
     Dosage: CYCLE 1
     Route: 042
     Dates: start: 20200519, end: 20200519

REACTIONS (13)
  - Thrombocytopenia [Recovering/Resolving]
  - Neutropenia [Recovering/Resolving]
  - Subdural haematoma [Recovered/Resolved]
  - Pancytopenia [Unknown]
  - Diarrhoea [Recovered/Resolved]
  - Haematoma [Recovered/Resolved]
  - Neutropenia [Recovered/Resolved]
  - Hypokalaemia [Recovering/Resolving]
  - Acute myeloid leukaemia [Fatal]
  - Monocyte count decreased [Unknown]
  - Decubitus ulcer [Unknown]
  - Haemolysis [Recovering/Resolving]
  - Investigation abnormal [Unknown]

NARRATIVE: CASE EVENT DATE: 2020
